FAERS Safety Report 14907137 (Version 1)
Quarter: 2018Q2

REPORT INFORMATION
  Report Type: Spontaneous
  Country: SK (occurrence: SK)
  Receive Date: 20180517
  Receipt Date: 20180517
  Transmission Date: 20180711
  Serious: Yes (Hospitalization, Other)
  Sender: FDA-Public Use
  Company Number: SK-BRISTOL-MYERS SQUIBB COMPANY-BMS-2018-042088

PATIENT
  Age: 75 Year
  Sex: Female

DRUGS (1)
  1. WARFARIN SODIUM. [Suspect]
     Active Substance: WARFARIN SODIUM
     Indication: PRODUCT USED FOR UNKNOWN INDICATION
     Route: 065

REACTIONS (7)
  - Overdose [Unknown]
  - Loss of personal independence in daily activities [Unknown]
  - Anal incontinence [Unknown]
  - Fall [Unknown]
  - Spinal fracture [Unknown]
  - Urinary incontinence [Unknown]
  - Clostridium difficile colitis [Unknown]
